FAERS Safety Report 19981671 (Version 1)
Quarter: 2021Q4

REPORT INFORMATION
  Report Type: Other
  Country: IN (occurrence: IN)
  Receive Date: 20211021
  Receipt Date: 20211021
  Transmission Date: 20220303
  Serious: Yes (Other)
  Sender: FDA-Public Use
  Company Number: IN-ROCHE-2940906

PATIENT

DRUGS (4)
  1. RIBAVIRIN [Suspect]
     Active Substance: RIBAVIRIN
     Indication: COVID-19
     Dosage: LOADING DOSE
     Route: 048
  2. RIBAVIRIN [Suspect]
     Active Substance: RIBAVIRIN
     Route: 048
  3. HYDROXYCHLOROQUINE [Suspect]
     Active Substance: HYDROXYCHLOROQUINE
     Indication: COVID-19
     Route: 048
  4. HYDROXYCHLOROQUINE [Suspect]
     Active Substance: HYDROXYCHLOROQUINE
     Route: 048

REACTIONS (1)
  - Drug-induced liver injury [Unknown]
